FAERS Safety Report 6998969-4 (Version None)
Quarter: 2010Q3

REPORT INFORMATION
  Report Type: 
  Country: None (occurrence: None)
  Receive Date: 20100920
  Receipt Date: 20100630
  Transmission Date: 20110219
  Serious: No
  Sender: FDA-Public Use
  Company Number: US-ASTRAZENECA-2010SE30515

PATIENT
  Age: 8916 Day
  Sex: Female
  Weight: 117.9 kg

DRUGS (1)
  1. SEROQUEL XR [Suspect]
     Indication: BIPOLAR DISORDER
     Route: 048

REACTIONS (3)
  - AGITATION [None]
  - DRUG DOSE OMISSION [None]
  - HALLUCINATION, AUDITORY [None]
